FAERS Safety Report 7910737-5 (Version None)
Quarter: 2011Q4

REPORT INFORMATION
  Report Type: 
  Country: None (occurrence: None)
  Receive Date: 20111112
  Receipt Date: 20111102
  Transmission Date: 20120403
  Serious: Yes (Other)
  Sender: FDA-Public Use
  Company Number: DE-ASTRAZENECA-2011SE21098

PATIENT
  Age: 23317 Day
  Sex: Male
  Weight: 126 kg

DRUGS (10)
  1. OMEPRAZOLE [Concomitant]
  2. PELAXIA [Concomitant]
  3. FELODIPINE [Concomitant]
  4. BRILIQUE [Suspect]
     Indication: ACUTE MYOCARDIAL INFARCTION
     Route: 048
     Dates: start: 20110227, end: 20110401
  5. KARVEA [Concomitant]
  6. LEVEMIR [Concomitant]
  7. BISOPROLOL [Concomitant]
  8. TORSEMIDE [Concomitant]
  9. RAPID INSULIN [Concomitant]
     Dosage: 3X25 I.E.
  10. ASPIRIN [Concomitant]

REACTIONS (3)
  - HALLUCINATION [None]
  - DYSPNOEA [None]
  - ANXIETY [None]
